FAERS Safety Report 13426497 (Version 1)
Quarter: 2017Q2

REPORT INFORMATION
  Report Type: Spontaneous
  Country: RS (occurrence: RS)
  Receive Date: 20170411
  Receipt Date: 20170411
  Transmission Date: 20170830
  Serious: Yes (Other)
  Sender: FDA-Public Use
  Company Number: PHHY2017RS049235

PATIENT
  Age: 15 Year
  Sex: Female
  Weight: 70 kg

DRUGS (1)
  1. AMOKSIKLAV 2X [Suspect]
     Active Substance: AMOXICILLIN\CLAVULANATE POTASSIUM
     Indication: PHARYNGITIS
     Dosage: 1000 MG, BID
     Route: 048
     Dates: start: 20170327, end: 20170327

REACTIONS (3)
  - Swelling face [Recovered/Resolved]
  - Eyelid oedema [Recovered/Resolved]
  - Urticaria [Recovered/Resolved]

NARRATIVE: CASE EVENT DATE: 20170327
